FAERS Safety Report 23717435 (Version 1)
Quarter: 2024Q2

REPORT INFORMATION
  Report Type: Spontaneous
  Country: US (occurrence: None)
  Receive Date: 20240405
  Receipt Date: 20240405
  Transmission Date: 20240716
  Serious: Yes (Hospitalization)
  Sender: FDA-Public Use
  Company Number: None

PATIENT
  Age: 71 Year
  Sex: Female

DRUGS (2)
  1. AMBRISENTAN [Suspect]
     Active Substance: AMBRISENTAN
     Indication: Pulmonary arterial hypertension
     Dosage: FREQ: TAKE 1 TABLET BY MOUTH DAILY
     Dates: start: 20200805
  2. TADALAFIL [Concomitant]

REACTIONS (1)
  - Kidney infection [None]

NARRATIVE: CASE EVENT DATE: 20240329
